FAERS Safety Report 12090901 (Version 2)
Quarter: 2016Q1

REPORT INFORMATION
  Report Type: Report from Study
  Country: FR (occurrence: FR)
  Receive Date: 20160218
  Receipt Date: 20160224
  Transmission Date: 20160526
  Serious: Yes (Hospitalization)
  Sender: FDA-Public Use
  Company Number: FR-JNJFOC-20160213369

PATIENT
  Age: 55 Year
  Sex: Male

DRUGS (6)
  1. DEXAMETHASONE. [Suspect]
     Active Substance: DEXAMETHASONE
     Indication: PLASMA CELL MYELOMA
     Route: 048
     Dates: start: 20160209
  2. AXEPIM [Concomitant]
     Active Substance: CEFEPIME HYDROCHLORIDE
  3. DARATUMUMAB [Suspect]
     Active Substance: DARATUMUMAB
     Indication: PLASMA CELL MYELOMA
     Route: 042
     Dates: start: 20160209
  4. AMIKACIN [Concomitant]
     Active Substance: AMIKACIN
  5. CIFLO [Concomitant]
  6. SALBUTAMOL [Concomitant]
     Active Substance: ALBUTEROL

REACTIONS (1)
  - Systemic inflammatory response syndrome [Not Recovered/Not Resolved]

NARRATIVE: CASE EVENT DATE: 20160209
